FAERS Safety Report 10191528 (Version 3)
Quarter: 2014Q2

REPORT INFORMATION
  Report Type: Spontaneous
  Country: US (occurrence: US)
  Receive Date: 20140523
  Receipt Date: 20140606
  Transmission Date: 20141212
  Serious: Yes (Hospitalization)
  Sender: FDA-Public Use
  Company Number: US-JNJFOC-20140511664

PATIENT
  Age: 63 Year
  Sex: Male

DRUGS (5)
  1. XARELTO [Suspect]
     Indication: PULMONARY EMBOLISM
     Route: 048
  2. ATIVAN [Concomitant]
     Route: 065
  3. METHADONE [Concomitant]
     Route: 065
  4. OXYCODONE [Concomitant]
     Route: 065
  5. STATINS [Concomitant]
     Route: 065

REACTIONS (1)
  - Subdural haematoma [Recovering/Resolving]
